FAERS Safety Report 10697367 (Version 1)
Quarter: 2015Q1

REPORT INFORMATION
  Report Type: Report from Study
  Country: PE (occurrence: None)
  Receive Date: 20150106
  Receipt Date: 20150106
  Transmission Date: 20150721
  Serious: Yes (Death, Hospitalization)
  Sender: FDA-Public Use
  Company Number: 8003709

PATIENT
  Age: 89 Year
  Sex: Female

DRUGS (8)
  1. EXFORGE (DIOVAN AMLO) (AMLODIPINE BESILATE, VALSARTAN0? [Concomitant]
  2. DAPLON (DIOSMIN) [Concomitant]
  3. CARDIOASPIRINA (ACETYLSALICYLIC ACID) (ACETYLSALICYLIC ACID) [Concomitant]
  4. LIRICA (PREGABALIN) (PREGABALIN) [Concomitant]
  5. FUROSEMIDA /00032601/ (FUROSEMIDE) (FUROSEMIDE) [Concomitant]
  6. EUTIROX (LEVOTHYROXINE SODIUM) (LEVOTHYROXINE SODIUM) [Suspect]
     Active Substance: LEVOTHYROXINE SODIUM
     Indication: PRODUCT USED FOR UNKNOWN INDICATION
     Dates: start: 20120726, end: 201412
  7. GLUCOPHAGE XR [Suspect]
     Active Substance: METFORMIN HYDROCHLORIDE
     Indication: PRODUCT USED FOR UNKNOWN INDICATION
     Dosage: 750 MC (1 IN 1 D)
     Dates: start: 20120726, end: 201412
  8. GLUCOVANCE [Suspect]
     Active Substance: GLYBURIDE\METFORMIN HYDROCHLORIDE
     Indication: DIABETES MELLITUS
     Dosage: 1 IN 2 D?
     Dates: start: 20110219, end: 201412

REACTIONS (1)
  - Blood glucose decreased [None]

NARRATIVE: CASE EVENT DATE: 201412
